FAERS Safety Report 7257572-1 (Version None)
Quarter: 2011Q1

REPORT INFORMATION
  Report Type: 
  Country: None (occurrence: None)
  Receive Date: 20110129
  Receipt Date: 20100607
  Transmission Date: 20110831
  Serious: No
  Sender: FDA-Public Use
  Company Number: US-ABBOTT-10P-163-0649226-00

PATIENT
  Sex: Female

DRUGS (17)
  1. ACTONEL [Concomitant]
     Indication: ARTHROPATHY
  2. VITAMIN D [Concomitant]
     Indication: PRODUCT USED FOR UNKNOWN INDICATION
     Dosage: 800-1000MG 2 TABS
  3. ASPIRIN [Concomitant]
     Indication: CARDIAC DISORDER
  4. OMEPRAZOLE [Concomitant]
     Indication: GASTROOESOPHAGEAL REFLUX DISEASE
  5. ONE A DAY MULTIVITAMIN [Concomitant]
     Indication: PRODUCT USED FOR UNKNOWN INDICATION
  6. ASCORBIC ACID [Concomitant]
     Indication: PRODUCT USED FOR UNKNOWN INDICATION
  7. VICODIN [Concomitant]
     Indication: PAIN
  8. VITAMIN E [Concomitant]
     Indication: PRODUCT USED FOR UNKNOWN INDICATION
  9. PROPRANOLOL [Concomitant]
     Indication: HYPERTENSION
     Route: 048
  10. SULFASALAZINE [Concomitant]
     Indication: INFLAMMATION
  11. GLUCOSAMINE SULFATE [Concomitant]
     Indication: PRODUCT USED FOR UNKNOWN INDICATION
  12. VERAPAMIL [Concomitant]
     Dosage: AT NIGHT
  13. BENICAR [Concomitant]
     Indication: HYPERTENSION
  14. DETROL [Concomitant]
     Indication: URINARY INCONTINENCE
  15. HUMIRA [Suspect]
     Indication: PRODUCT USED FOR UNKNOWN INDICATION
     Dates: start: 20100510
  16. VERAPAMIL [Concomitant]
     Indication: HYPERTENSION
     Route: 048
  17. CALCIUM [Concomitant]
     Indication: PRODUCT USED FOR UNKNOWN INDICATION

REACTIONS (1)
  - INJECTION SITE HAEMORRHAGE [None]
